FAERS Safety Report 7267344-X (Version None)
Quarter: 2011Q1

REPORT INFORMATION
  Report Type: 
  Country: None (occurrence: None)
  Receive Date: 20110201
  Receipt Date: 20100422
  Transmission Date: 20110831
  Serious: No
  Sender: FDA-Public Use
  Company Number: A0854151A

PATIENT
  Age: 58 Year
  Sex: Male

DRUGS (5)
  1. CHEMOTHERAPY [Concomitant]
  2. ZOMETA [Concomitant]
  3. ARIXTRA [Suspect]
     Indication: ANTICOAGULANT THERAPY
     Dosage: 7.5MG PER DAY
     Route: 058
     Dates: start: 20091201
  4. UNKNOWN MEDICATION [Concomitant]
  5. BLOOD PRESSURE MEDICATION [Concomitant]

REACTIONS (3)
  - INJECTION SITE SWELLING [None]
  - PRODUCT QUALITY ISSUE [None]
  - INJECTION SITE PAIN [None]
